FAERS Safety Report 9498172 (Version 1)
Quarter: 2013Q3

REPORT INFORMATION
  Report Type: Spontaneous
  Country: CA (occurrence: CA)
  Receive Date: 20130904
  Receipt Date: 20130904
  Transmission Date: 20140515
  Serious: Yes (Other)
  Sender: FDA-Public Use
  Company Number: CA-ROCHE-1269904

PATIENT
  Age: 14 Month
  Sex: Male

DRUGS (3)
  1. CEFTRIAXONE [Suspect]
     Indication: PRODUCT USED FOR UNKNOWN INDICATION
     Route: 042
  2. CEFZIL [Suspect]
     Indication: PRODUCT USED FOR UNKNOWN INDICATION
     Dosage: THERAPY DURATION: 9.0 DAYS
     Route: 048
  3. FER-IN-SOL [Concomitant]
     Route: 065

REACTIONS (2)
  - Burns second degree [Recovered/Resolved with Sequelae]
  - Erythema [Recovered/Resolved with Sequelae]
